FAERS Safety Report 21118992 (Version 1)
Quarter: 2022Q3

REPORT INFORMATION
  Report Type: Spontaneous
  Country: US (occurrence: US)
  Receive Date: 20220722
  Receipt Date: 20220722
  Transmission Date: 20221027
  Serious: Yes (Death, Other)
  Sender: FDA-Public Use
  Company Number: US-AMGEN-USASP2022121456

PATIENT

DRUGS (4)
  1. BEVACIZUMAB [Suspect]
     Active Substance: BEVACIZUMAB
     Indication: Neuroendocrine carcinoma of the cervix
     Route: 065
  2. CISPLATIN [Concomitant]
     Active Substance: CISPLATIN
  3. CARBOPLATIN [Concomitant]
     Active Substance: CARBOPLATIN
  4. ETOPOSIDE [Concomitant]
     Active Substance: ETOPOSIDE

REACTIONS (4)
  - Death [Fatal]
  - Neuroendocrine carcinoma of the cervix [Unknown]
  - Neoplasm malignant [Unknown]
  - Therapy partial responder [Unknown]
